FAERS Safety Report 5093845-9 (Version None)
Quarter: 2006Q3

REPORT INFORMATION
  Report Type: 
  Country: None (occurrence: None)
  Receive Date: 20060829
  Receipt Date: 20060829
  Transmission Date: 20061208
  Serious: Yes (Other)
  Sender: FDA-Public Use
  Company Number: None

PATIENT
  Age: 87 Year
  Sex: Male
  Weight: 92.5 kg

DRUGS (4)
  1. TERAZOSIN HCL [Suspect]
  2. GABAPENTIN [Concomitant]
  3. GEMFIBROZIL [Concomitant]
  4. FISH OIL [Concomitant]

REACTIONS (2)
  - NAUSEA [None]
  - VOMITING [None]
